FAERS Safety Report 10733509 (Version 1)
Quarter: 2015Q1

REPORT INFORMATION
  Report Type: Spontaneous
  Country: US (occurrence: US)
  Receive Date: 20150123
  Receipt Date: 20150123
  Transmission Date: 20150721
  Serious: Yes (Other)
  Sender: FDA-Public Use
  Company Number: US-BAYER-2015-009487

PATIENT
  Age: 24 Year
  Sex: Female

DRUGS (1)
  1. MIRENA [Suspect]
     Active Substance: LEVONORGESTREL
     Indication: CONTRACEPTION
     Dosage: UNK
     Dates: start: 201407

REACTIONS (9)
  - Palpitations [None]
  - Anxiety [None]
  - Mood swings [None]
  - Dyspareunia [None]
  - Amenorrhoea [None]
  - Panic attack [None]
  - Feeling abnormal [None]
  - Genital haemorrhage [None]
  - Vulvovaginal pruritus [None]

NARRATIVE: CASE EVENT DATE: 20150119
